FAERS Safety Report 5904137-7 (Version None)
Quarter: 2008Q3

REPORT INFORMATION
  Report Type: 
  Country: None (occurrence: None)
  Receive Date: 20080919
  Receipt Date: 20080630
  Transmission Date: 20090109
  Serious: Yes (Other)
  Sender: FDA-Public Use
  Company Number: US-WYE-H04761308

PATIENT
  Age: 65 Year
  Sex: Male

DRUGS (7)
  1. PRISTIQ [Suspect]
     Indication: ANXIETY
     Dosage: 50 MG 1X PER 1 DAY, ORAL : 50 MG 1X PER 1 DAY, ORAL
     Route: 048
     Dates: start: 20080629, end: 20080711
  2. PRISTIQ [Suspect]
     Indication: DEPRESSION
     Dosage: 50 MG 1X PER 1 DAY, ORAL : 50 MG 1X PER 1 DAY, ORAL
     Route: 048
     Dates: start: 20080629, end: 20080711
  3. PRISTIQ [Suspect]
     Indication: ANXIETY
     Dosage: 50 MG 1X PER 1 DAY, ORAL : 50 MG 1X PER 1 DAY, ORAL
     Route: 048
     Dates: start: 20080701
  4. PRISTIQ [Suspect]
     Indication: DEPRESSION
     Dosage: 50 MG 1X PER 1 DAY, ORAL : 50 MG 1X PER 1 DAY, ORAL
     Route: 048
     Dates: start: 20080701
  5. LIBRIUM [Concomitant]
  6. KLONOPIN [Concomitant]
  7. LEXAPRO [Concomitant]

REACTIONS (10)
  - BLOOD PRESSURE INCREASED [None]
  - DIZZINESS [None]
  - DRUG WITHDRAWAL SYNDROME [None]
  - FEELING HOT [None]
  - HEART RATE INCREASED [None]
  - MALAISE [None]
  - PALPITATIONS [None]
  - PARAESTHESIA [None]
  - URINARY HESITATION [None]
  - URINARY RETENTION [None]
